FAERS Safety Report 7505580-5 (Version None)
Quarter: 2011Q2

REPORT INFORMATION
  Report Type: 
  Country: None (occurrence: None)
  Receive Date: 20110526
  Receipt Date: 20110519
  Transmission Date: 20111010
  Serious: Yes (Other)
  Sender: FDA-Public Use
  Company Number: NL-PFIZER INC-2011108715

PATIENT
  Age: 75 Year
  Sex: Male

DRUGS (2)
  1. SUTENT [Suspect]
     Indication: METASTATIC RENAL CELL CARCINOMA
     Dosage: 37.5 MG, UNK
     Dates: start: 20110101
  2. SUTENT [Suspect]
     Dosage: 25 MG, CYCLIC

REACTIONS (8)
  - PALMAR-PLANTAR ERYTHRODYSAESTHESIA SYNDROME [None]
  - INTRAOCULAR PRESSURE INCREASED [None]
  - HAEMOPTYSIS [None]
  - DIPLOPIA [None]
  - DECREASED APPETITE [None]
  - FATIGUE [None]
  - DIARRHOEA [None]
  - ABDOMINAL PAIN UPPER [None]
